FAERS Safety Report 4928608-5 (Version None)
Quarter: 2006Q1

REPORT INFORMATION
  Report Type: 
  Country: None (occurrence: None)
  Receive Date: 20060301
  Receipt Date: 20060103
  Transmission Date: 20060701
  Serious: Yes (Disabling)
  Sender: FDA-Public Use
  Company Number: SE-RB-2536-2006

PATIENT
  Age: 1 Day
  Sex: Male

DRUGS (3)
  1. BUPRENORPHINE HCL [Suspect]
     Indication: DRUG DEPENDENCE
     Dosage: DURG EXPOSURE DURING PREGNANCY
     Route: 060
     Dates: start: 20011101, end: 20020801
  2. BUPRENORPHINE HCL [Suspect]
     Route: 060
     Dates: start: 20020801, end: 20030501
  3. BUPRENORPHINE HCL [Suspect]
     Route: 060
     Dates: start: 20030501

REACTIONS (3)
  - DRUG EXPOSURE DURING PREGNANCY [None]
  - RESTLESSNESS [None]
  - SPEECH DISORDER DEVELOPMENTAL [None]
